FAERS Safety Report 25941681 (Version 1)
Quarter: 2025Q4

REPORT INFORMATION
  Report Type: Spontaneous
  Country: US (occurrence: US)
  Receive Date: 20251020
  Receipt Date: 20251020
  Transmission Date: 20260117
  Serious: Yes (Other)
  Sender: AMNEAL
  Company Number: US-AMNEAL PHARMACEUTICALS-2025-AMRX-03981

PATIENT
  Age: 4 Month
  Sex: Male

DRUGS (3)
  1. VIGABATRIN [Suspect]
     Active Substance: VIGABATRIN
     Indication: Infantile spasms
     Dosage: 48 MG PER KG PER D DIVIDED TWICE DAILY
     Route: 065
  2. VIGABATRIN [Suspect]
     Active Substance: VIGABATRIN
     Dosage: 48 MG PER KG PER D DIVIDED THRICE DAILY
     Route: 065
  3. VIGABATRIN [Suspect]
     Active Substance: VIGABATRIN
     Dosage: 108 MG PER KG PER D DIVIDED TWICE DAILY
     Route: 065

REACTIONS (3)
  - Hydrocephalus [Recovering/Resolving]
  - Hypotonia neonatal [Recovering/Resolving]
  - Respiratory failure [Recovering/Resolving]
